FAERS Safety Report 23533584 (Version 1)
Quarter: 2024Q1

REPORT INFORMATION
  Report Type: Spontaneous
  Country: ES (occurrence: US)
  Receive Date: 20240216
  Receipt Date: 20240216
  Transmission Date: 20240410
  Serious: Yes (Death, Hospitalization)
  Sender: FDA-Public Use
  Company Number: ES-AMGEN-USASP2024029567

PATIENT

DRUGS (5)
  1. RITUXIMAB [Suspect]
     Active Substance: RITUXIMAB
     Indication: Non-Hodgkin^s lymphoma
     Dosage: UNK
     Route: 065
  2. COVID-19 vaccine [Concomitant]
     Dosage: UNK
     Route: 065
  3. CYCLOPHOSPHAMIDE [Concomitant]
     Active Substance: CYCLOPHOSPHAMIDE
     Indication: Prophylaxis against graft versus host disease
     Dosage: UNK
     Route: 065
  4. MYCOPHENOLATE MOFETIL [Concomitant]
     Active Substance: MYCOPHENOLATE MOFETIL
     Indication: Prophylaxis against graft versus host disease
     Dosage: UNK
     Route: 065
  5. METHOTREXATE [Concomitant]
     Active Substance: METHOTREXATE
     Indication: Prophylaxis against graft versus host disease
     Dosage: UNK
     Route: 065

REACTIONS (16)
  - Malignant neoplasm progression [Fatal]
  - Venoocclusive liver disease [Fatal]
  - Sepsis [Fatal]
  - COVID-19 [Fatal]
  - Deep vein thrombosis [Unknown]
  - Syncope [Unknown]
  - Influenza like illness [Unknown]
  - Pneumonitis [Unknown]
  - Septic embolus [Unknown]
  - Bacteraemia [Unknown]
  - Enterovirus infection [Unknown]
  - Respiratory tract infection [Unknown]
  - Pneumonia [Unknown]
  - Urinary tract infection [Unknown]
  - Pyrexia [Unknown]
  - Infection [Unknown]
